FAERS Safety Report 8100808-5 (Version None)
Quarter: 2012Q1

REPORT INFORMATION
  Report Type: 
  Country: None (occurrence: None)
  Receive Date: 20120129
  Receipt Date: 20111014
  Transmission Date: 20120608
  Serious: No
  Sender: FDA-Public Use
  Company Number: US-ABBOTT-11P-163-0864523-00

PATIENT
  Age: 56 Year
  Sex: Male

DRUGS (6)
  1. CRESTOR [Concomitant]
     Indication: PRODUCT USED FOR UNKNOWN INDICATION
  2. HUMIRA [Suspect]
     Indication: CROHN'S DISEASE
     Dates: start: 20110630
  3. ASACOL HD [Concomitant]
     Indication: PRODUCT USED FOR UNKNOWN INDICATION
  4. UNKNOWN BLOOD PRESSURE MEDICATION [Concomitant]
     Indication: PRODUCT USED FOR UNKNOWN INDICATION
  5. UNKNOWN PAIN MEDICATION [Concomitant]
     Indication: PRODUCT USED FOR UNKNOWN INDICATION
  6. UNKNOWN ANTIDIARRHEAL MEDICATION [Concomitant]
     Indication: PRODUCT USED FOR UNKNOWN INDICATION

REACTIONS (3)
  - ABDOMINAL PAIN [None]
  - DIARRHOEA [None]
  - NAUSEA [None]
